FAERS Safety Report 16444023 (Version 2)
Quarter: 2019Q3

REPORT INFORMATION
  Report Type: Report from Study
  Country: ES (occurrence: ES)
  Receive Date: 20190618
  Receipt Date: 20190817
  Transmission Date: 20191004
  Serious: Yes (Other)
  Sender: FDA-Public Use
  Company Number: ES-ACCORD-133192

PATIENT
  Sex: Female

DRUGS (1)
  1. TEMOZOLOMIDE. [Suspect]
     Active Substance: TEMOZOLOMIDE
     Indication: GLIOBLASTOMA
     Dosage: ADJUVANT TMZ WAS PRESCRIBED ONE MONTH AFTER THE END OF HFRT, AT 150-200 MG/M2 ORALLY, ONCE DAILY
     Route: 048
     Dates: start: 201101

REACTIONS (4)
  - Asthenia [Unknown]
  - Decreased appetite [Unknown]
  - Karnofsky scale worsened [Unknown]
  - Radiation necrosis [Unknown]

NARRATIVE: CASE EVENT DATE: 2018
